FAERS Safety Report 6804583-3 (Version None)
Quarter: 2010Q2

REPORT INFORMATION
  Report Type: 
  Country: None (occurrence: None)
  Receive Date: 20100628
  Receipt Date: 20070615
  Transmission Date: 20101027
  Serious: No
  Sender: FDA-Public Use
  Company Number: US-PFIZER INC-2007029058

PATIENT
  Sex: Female
  Weight: 47.63 kg

DRUGS (6)
  1. GEODON [Suspect]
     Indication: BIPOLAR DISORDER
     Dates: start: 20060101
  2. LAMICTAL [Concomitant]
  3. ATIVAN [Concomitant]
  4. PROVIGIL [Concomitant]
  5. SYNTHROID [Concomitant]
  6. VITAMIN B COMPLEX CAP [Concomitant]

REACTIONS (1)
  - PALPITATIONS [None]
